FAERS Safety Report 4999202-5 (Version None)
Quarter: 2006Q2

REPORT INFORMATION
  Report Type: 
  Country: None (occurrence: None)
  Receive Date: 20060509
  Receipt Date: 20060421
  Transmission Date: 20061013
  Serious: Yes (Hospitalization, Other)
  Sender: FDA-Public Use
  Company Number: US_0509122185

PATIENT
  Age: 36 Year
  Sex: Female
  Weight: 90.5 kg

DRUGS (1)
  1. ZYPREXA [Suspect]
     Indication: ANXIETY
     Dosage: ORAL
     Route: 048
     Dates: start: 19970425

REACTIONS (15)
  - ALANINE AMINOTRANSFERASE INCREASED [None]
  - ASPARTATE AMINOTRANSFERASE INCREASED [None]
  - BLOOD CHOLESTEROL ABNORMAL [None]
  - BLOOD GLUCOSE FLUCTUATION [None]
  - BLOOD PRESSURE INCREASED [None]
  - BRADYCARDIA [None]
  - CHEST PAIN [None]
  - CONDITION AGGRAVATED [None]
  - DIABETES MELLITUS INADEQUATE CONTROL [None]
  - DIABETES MELLITUS NON-INSULIN-DEPENDENT [None]
  - DIABETIC KETOACIDOSIS [None]
  - PANCREATITIS [None]
  - TREATMENT NONCOMPLIANCE [None]
  - WEIGHT FLUCTUATION [None]
  - WEIGHT INCREASED [None]
